FAERS Safety Report 21515689 (Version 2)
Quarter: 2022Q4

REPORT INFORMATION
  Report Type: Spontaneous
  Country: US (occurrence: US)
  Receive Date: 20221027
  Receipt Date: 20221109
  Transmission Date: 20230112
  Serious: Yes (Hospitalization)
  Sender: FDA-Public Use
  Company Number: US-TEVA-2022-US-2818702

PATIENT
  Age: 4 Month
  Sex: Male
  Weight: 6 kg

DRUGS (6)
  1. VECURONIUM [Suspect]
     Active Substance: VECURONIUM BROMIDE
     Indication: Neuromuscular blocking therapy
     Dosage: 1440 UG/KG DAILY;
     Route: 050
  2. VECURONIUM [Suspect]
     Active Substance: VECURONIUM BROMIDE
     Dosage: 7200 UG/KG DAILY;
     Route: 050
  3. HYDROCORTISONE [Suspect]
     Active Substance: HYDROCORTISONE
     Indication: Steroid therapy
     Dosage: STRESS DOSES
     Route: 065
  4. EPINEPHRINE [Concomitant]
     Active Substance: EPINEPHRINE
     Indication: Bradycardia
     Route: 065
  5. FENTANYL [Concomitant]
     Active Substance: FENTANYL
     Indication: Sedation
     Dosage: DOSE: UP TO 2 UG/KG/HR
     Route: 065
  6. FENTANYL [Concomitant]
     Active Substance: FENTANYL
     Indication: Analgesic therapy

REACTIONS (2)
  - Neuromuscular block prolonged [Recovered/Resolved]
  - Cardiac arrest [Recovered/Resolved]
